FAERS Safety Report 5008250-0 (Version None)
Quarter: 2006Q2

REPORT INFORMATION
  Report Type: 
  Country: None (occurrence: None)
  Receive Date: 20060523
  Receipt Date: 20060403
  Transmission Date: 20061013
  Serious: Yes (Other)
  Sender: FDA-Public Use
  Company Number: PHBS2006HU05100

PATIENT
  Age: 64 Year
  Sex: Female
  Weight: 65 kg

DRUGS (7)
  1. ZOMETA [Suspect]
     Indication: METASTASES TO BONE
     Dosage: 4 MG, EVERY 28 DAYS
     Route: 042
     Dates: start: 20001201, end: 20041201
  2. AREDIA [Suspect]
     Indication: METASTASES TO BONE
     Dosage: 90 MG, EVERY 28 DAYS
     Route: 042
     Dates: start: 19980201, end: 20001201
  3. LETROZOLE [Concomitant]
     Dosage: 2.5 MG/D
     Route: 065
  4. METHOTREXATE [Concomitant]
     Indication: METASTASES TO BONE
     Dosage: 50 MG, DAY 1 AND DAY 14
     Route: 065
     Dates: start: 20030301
  5. VINCRISTINE [Concomitant]
     Indication: METASTASES TO BONE
     Dosage: 1 MG, DAY 1 AND DAY 14
     Route: 065
     Dates: start: 20030301
  6. CYTOXAN [Concomitant]
     Indication: METASTASES TO BONE
     Dosage: 600 MG, DAY 1 AND DAY 14
     Route: 065
     Dates: start: 20030301
  7. EPIRUBICIN [Concomitant]
     Route: 065

REACTIONS (5)
  - OSTEOMYELITIS [None]
  - OSTEONECROSIS [None]
  - PAIN IN JAW [None]
  - SURGERY [None]
  - SWELLING [None]
